FAERS Safety Report 19604752 (Version 12)
Quarter: 2021Q4

REPORT INFORMATION
  Report Type: Report from Study
  Country: MX (occurrence: MX)
  Receive Date: 20210724
  Receipt Date: 20211130
  Transmission Date: 20220303
  Serious: Yes (Hospitalization)
  Sender: FDA-Public Use
  Company Number: MX-TAKEDA-2021TUS006351

PATIENT
  Age: 5 Year
  Sex: Male
  Weight: 12 kg

DRUGS (4)
  1. VELAGLUCERASE ALFA [Suspect]
     Active Substance: VELAGLUCERASE ALFA
     Indication: Gaucher^s disease
     Dosage: 400 INTERNATIONAL UNIT, Q2WEEKS
     Route: 042
     Dates: start: 20160601
  2. VELAGLUCERASE ALFA [Suspect]
     Active Substance: VELAGLUCERASE ALFA
     Dosage: 4 DOSAGE FORM, EVERY 15 DAYS
     Route: 042
     Dates: start: 20160601
  3. IBUPROFEN [Concomitant]
     Active Substance: IBUPROFEN
     Dosage: 5.2 MILLIGRAM
     Route: 065
  4. BACTRIM [Concomitant]
     Active Substance: SULFAMETHOXAZOLE\TRIMETHOPRIM
     Dosage: 5.5 MILLIGRAM
     Route: 065

REACTIONS (12)
  - Diarrhoea [Recovered/Resolved]
  - Hyperthermia [Recovered/Resolved]
  - Headache [Recovered/Resolved]
  - Abdominal pain [Recovered/Resolved]
  - Epistaxis [Recovering/Resolving]
  - Hypersomnia [Unknown]
  - Fatigue [Unknown]
  - Infusion related reaction [Unknown]
  - Therapy interrupted [Unknown]
  - Product availability issue [Unknown]
  - Incorrect product administration duration [Unknown]
  - Product dose omission issue [Unknown]

NARRATIVE: CASE EVENT DATE: 20200319
